FAERS Safety Report 9421945 (Version 2)
Quarter: 2013Q4

REPORT INFORMATION
  Report Type: Spontaneous
  Country: CA (occurrence: CA)
  Receive Date: 20130726
  Receipt Date: 20131216
  Transmission Date: 20140711
  Serious: Yes (Other)
  Sender: FDA-Public Use
  Company Number: CA-ROCHE-1252054

PATIENT
  Age: 37 Year
  Sex: Female

DRUGS (2)
  1. XOLAIR [Suspect]
     Indication: ASTHMA
     Route: 058
     Dates: start: 20110610
  2. XOLAIR [Suspect]
     Route: 058
     Dates: start: 20110706, end: 20120829

REACTIONS (8)
  - Colitis ulcerative [Unknown]
  - Hypersensitivity [Unknown]
  - Hordeolum [Unknown]
  - Migraine [Unknown]
  - Rash [Unknown]
  - Dizziness [Unknown]
  - Pruritus [Unknown]
  - Headache [Unknown]
